FAERS Safety Report 18842339 (Version 1)
Quarter: 2021Q1

REPORT INFORMATION
  Report Type: Report from Study
  Country: DE (occurrence: DE)
  Receive Date: 20210203
  Receipt Date: 20210203
  Transmission Date: 20210419
  Serious: Yes (Death, Hospitalization)
  Sender: FDA-Public Use
  Company Number: DE-MYLANLABS-2021M1006668

PATIENT
  Age: 49 Year
  Sex: Male
  Weight: 75 kg

DRUGS (22)
  1. CISPLATIN. [Suspect]
     Active Substance: CISPLATIN
     Indication: HER2 POSITIVE GASTRIC CANCER
     Dosage: MOST RECENT DOSE PRIOR TO THE EVENT: 07/JAN/2016
     Route: 042
     Dates: start: 20151022
  2. CLEXANE [Concomitant]
     Active Substance: ENOXAPARIN SODIUM
     Indication: PROPHYLAXIS
     Dosage: 40 MILLIGRAM
     Route: 058
     Dates: start: 20160123, end: 20160123
  3. KONAKION [Concomitant]
     Active Substance: PHYTONADIONE
     Indication: PROPHYLAXIS
     Dosage: 10 MILLIGRAM
     Route: 042
     Dates: start: 20160126, end: 20160126
  4. MORPHINE [Concomitant]
     Active Substance: MORPHINE
     Indication: PAIN
     Dosage: 10 MILLIGRAM
     Route: 042
     Dates: start: 20160126, end: 20160126
  5. NOVAMINSULFON [Concomitant]
     Active Substance: METAMIZOLE
     Indication: PAIN
     Dosage: 4 GRAM
     Route: 042
     Dates: start: 20160124, end: 20160127
  6. TRASTUZUMAB. [Suspect]
     Active Substance: TRASTUZUMAB
     Indication: HER2 POSITIVE GASTRIC CANCER
     Dosage: MOST RECENT DOSE PRIOR TO THE EVENT: 07/JAN/2016
     Route: 042
  7. TRASTUZUMAB. [Suspect]
     Active Substance: TRASTUZUMAB
     Dosage: INTRAVENOUS TRASTUZUMAB LOADING DOSE 8 MG/KG,
     Route: 042
     Dates: start: 20151022
  8. METOPROLOL. [Concomitant]
     Active Substance: METOPROLOL
     Indication: HYPERTENSION
     Dosage: 23.75 MILLIGRAM
     Route: 048
     Dates: start: 20160119
  9. METOCLOPRAMID                      /00041901/ [Concomitant]
     Active Substance: METOCLOPRAMIDE
     Indication: NAUSEA
     Dosage: 20 GTT DROPS
     Route: 048
     Dates: start: 20151022
  10. RED BLOOD CELLS, CONCENTRATED [Concomitant]
     Active Substance: HUMAN RED BLOOD CELL
     Indication: ANAEMIA
     Dosage: UNK
     Route: 042
     Dates: start: 20160127, end: 20160127
  11. PERTUZUMAB. [Suspect]
     Active Substance: PERTUZUMAB
     Indication: HER2 POSITIVE GASTRIC CANCER
     Dosage: MOST RECENT DOSE PRIOR TO THE EVENT: 07/JAN/2016
     Route: 042
     Dates: start: 20151022
  12. ZOPICLON [Concomitant]
     Active Substance: ZOPICLONE
     Indication: SLEEP DISORDER
     Dosage: 7.5 MILLIGRAM
     Route: 048
     Dates: start: 20151030
  13. CAPECITABINE. [Suspect]
     Active Substance: CAPECITABINE
     Indication: HER2 POSITIVE GASTRIC CANCER
     Dosage: MOST RECENT DOSE PRIOR TO THE EVENT: 24/DEC/2015, 23/JAN/2016
     Route: 048
     Dates: start: 20151022
  14. PANTOZOL [Concomitant]
     Active Substance: PANTOPRAZOLE SODIUM
     Indication: PROPHYLAXIS
     Dosage: 40 MILLIGRAM
     Route: 048
     Dates: start: 20151204
  15. RED BLOOD CELLS, CONCENTRATED [Concomitant]
     Active Substance: HUMAN RED BLOOD CELL
     Indication: THROMBOCYTOPENIA
     Dosage: UNK
     Route: 042
     Dates: start: 20160122, end: 20160122
  16. UREA. [Concomitant]
     Active Substance: UREA
     Indication: PALMAR-PLANTAR ERYTHRODYSAESTHESIA SYNDROME
     Dosage: DOSE: 1 OTHER 10 PERCENT OINTMENT
     Route: 061
     Dates: start: 20151203
  17. FERRO SANOL [Concomitant]
     Active Substance: FERROUS GLYCINE SULFATE
     Indication: ANAEMIA
     Dosage: 1 CAPSULE
     Route: 048
     Dates: start: 20160107, end: 20160122
  18. ONDANSETRON [Concomitant]
     Active Substance: ONDANSETRON
     Indication: NAUSEA
     Dosage: 8 MILLIGRAM
     Route: 048
     Dates: start: 20151030
  19. DEXAMETHASON                       /00016001/ [Concomitant]
     Active Substance: DEXAMETHASONE
     Indication: NAUSEA
     Dosage: 4 MILLIGRAM
     Route: 048
     Dates: start: 20151022
  20. STEROFUNDIN [Concomitant]
     Active Substance: CALCIUM CHLORIDE\MAGNESIUM CHLORIDE\POTASSIUM CHLORIDE\SODIUM ACETATE\SODIUM CHLORIDE
     Indication: FLUID REPLACEMENT
     Dosage: 500 MILLILITER
     Route: 042
     Dates: start: 20160123, end: 20160127
  21. BEPANTHEN                          /00178901/ [Concomitant]
     Active Substance: DEXPANTHENOL
     Indication: MUCOSAL INFLAMMATION
     Dosage: DOSE: 1 OTHER
     Route: 061
     Dates: start: 20151112
  22. FILGRASTIM [Concomitant]
     Active Substance: FILGRASTIM
     Indication: LEUKOPENIA
     Dosage: DOSE: 48 OTHER
     Route: 058
     Dates: start: 20160125, end: 20160126

REACTIONS (2)
  - Diarrhoea [Not Recovered/Not Resolved]
  - Sepsis [Fatal]

NARRATIVE: CASE EVENT DATE: 20160123
